FAERS Safety Report 13282553 (Version 1)
Quarter: 2017Q1

REPORT INFORMATION
  Report Type: Spontaneous
  Country: US (occurrence: US)
  Receive Date: 20170301
  Receipt Date: 20170301
  Transmission Date: 20170428
  Serious: No
  Sender: FDA-Public Use
  Company Number: US-ABBVIE-16P-163-1590935-00

PATIENT
  Sex: Male

DRUGS (1)
  1. ANDROGEL [Suspect]
     Active Substance: TESTOSTERONE
     Indication: BLOOD TESTOSTERONE FREE DECREASED
     Dosage: FORMULATION WAS NOT PROVIDED
     Route: 061

REACTIONS (1)
  - Headache [Recovered/Resolved]
